FAERS Safety Report 5565287-0 (Version None)
Quarter: 2007Q4

REPORT INFORMATION
  Report Type: 
  Country: None (occurrence: None)
  Receive Date: 20071218
  Receipt Date: 20020213
  Transmission Date: 20080405
  Serious: Yes (Death, Life-Threatening)
  Sender: FDA-Public Use
  Company Number: US-ROCHE-307178

PATIENT
  Age: 79 Year
  Sex: Female

DRUGS (11)
  1. ROCEPHIN [Suspect]
     Indication: PNEUMONIA
     Route: 042
     Dates: start: 20020128, end: 20020128
  2. ZESTRIL [Concomitant]
     Route: 048
  3. LASIX [Concomitant]
     Route: 048
  4. CARAFATE [Concomitant]
     Dosage: TAKEN PRE-MEALS.
     Route: 048
  5. GUAIFENESIN [Concomitant]
     Route: 048
  6. PREDNISONE [Concomitant]
     Route: 048
  7. PRILOSEC [Concomitant]
     Route: 048
  8. LORTAB [Concomitant]
     Indication: PAIN
     Route: 048
  9. COMBIVENT [Concomitant]
     Route: 055
  10. DONNATAL [Concomitant]
     Route: 048
  11. POTASSIUM CHLORIDE [Concomitant]
     Route: 048

REACTIONS (6)
  - CARDIAC FAILURE CONGESTIVE [None]
  - CARDIO-RESPIRATORY ARREST [None]
  - HEPATIC FAILURE [None]
  - HYPERSENSITIVITY [None]
  - PNEUMONIA [None]
  - RENAL FAILURE [None]
